FAERS Safety Report 4996411-6 (Version None)
Quarter: 2006Q2

REPORT INFORMATION
  Report Type: 
  Country: None (occurrence: None)
  Receive Date: 20060505
  Receipt Date: 20060421
  Transmission Date: 20061013
  Serious: Yes (Hospitalization)
  Sender: FDA-Public Use
  Company Number: AZAUK200600136

PATIENT
  Age: 66 Year
  Sex: Female

DRUGS (9)
  1. VIDAZA [Suspect]
     Indication: MYELODYSPLASTIC SYNDROME
     Dosage: 75 MG/M2 (DAILY X 7 DAYS) SUBCUTANEOUS (SEE IMAGE)
     Route: 058
     Dates: start: 20050817, end: 20050823
  2. VIDAZA [Suspect]
     Indication: MYELODYSPLASTIC SYNDROME
     Dosage: 75 MG/M2 (DAILY X 7 DAYS) SUBCUTANEOUS (SEE IMAGE)
     Route: 058
     Dates: start: 20051123, end: 20051129
  3. VIDAZA [Suspect]
     Indication: MYELODYSPLASTIC SYNDROME
     Dosage: 75 MG/M2 (DAILY X 7 DAYS) SUBCUTANEOUS (SEE IMAGE)
     Route: 058
     Dates: start: 20060301, end: 20060307
  4. VIDAZA [Suspect]
     Indication: MYELODYSPLASTIC SYNDROME
     Dosage: 75 MG/M2 (DAILY X 7 DAYS) SUBCUTANEOUS (SEE IMAGE)
     Route: 058
     Dates: start: 20060301, end: 20060307
  5. VIDAZA [Suspect]
     Dosage: 75 MG/M2 (DAILY X 7 DAYS); SUBCUTANEOUS
     Route: 058
     Dates: start: 20051012, end: 20051018
  6. MEROPENEM [Concomitant]
  7. TEICOPLANIN [Concomitant]
  8. FLUCLOXACILLIN [Concomitant]
  9. FUCIDINE CAP [Concomitant]

REACTIONS (4)
  - ABSCESS [None]
  - BLOOD ALKALINE PHOSPHATASE INCREASED [None]
  - BONE MARROW FAILURE [None]
  - INFECTIVE MYOSITIS [None]
